FAERS Safety Report 12444834 (Version 2)
Quarter: 2016Q2

REPORT INFORMATION
  Report Type: Report from Study
  Country: US (occurrence: US)
  Receive Date: 20160607
  Receipt Date: 20160622
  Transmission Date: 20160815
  Serious: Yes (Other)
  Sender: FDA-Public Use
  Company Number: US-ABBVIE-16K-163-1642559-00

PATIENT
  Age: 70 Year
  Sex: Female
  Weight: 82.17 kg

DRUGS (1)
  1. HUMIRA [Suspect]
     Active Substance: ADALIMUMAB
     Indication: RHEUMATOID ARTHRITIS
     Route: 058
     Dates: start: 1995

REACTIONS (8)
  - Arthritis [Not Recovered/Not Resolved]
  - Articular calcification [Unknown]
  - Ligament sprain [Recovered/Resolved]
  - Stress fracture [Recovering/Resolving]
  - Osteoarthritis [Unknown]
  - Loose body in joint [Unknown]
  - Ankle fracture [Recovered/Resolved]
  - Soft tissue disorder [Unknown]

NARRATIVE: CASE EVENT DATE: 201510
